FAERS Safety Report 6987817-4 (Version None)
Quarter: 2010Q3

REPORT INFORMATION
  Report Type: 
  Country: None (occurrence: None)
  Receive Date: 20100914
  Receipt Date: 20100903
  Transmission Date: 20110219
  Serious: Yes (Hospitalization, Disabling)
  Sender: FDA-Public Use
  Company Number: 2010EU004295

PATIENT
  Age: 50 Year
  Sex: Female

DRUGS (1)
  1. PROGRAF [Suspect]
     Indication: RENAL TRANSPLANT
     Dosage: ORAL
     Route: 048
     Dates: end: 20100719

REACTIONS (3)
  - DRUG EFFECT DECREASED [None]
  - MACULAR OEDEMA [None]
  - OPTIC NEUROPATHY [None]
